FAERS Safety Report 9382019 (Version 1)
Quarter: 2013Q3

REPORT INFORMATION
  Report Type: Spontaneous
  Country: US (occurrence: US)
  Receive Date: 20130703
  Receipt Date: 20130703
  Transmission Date: 20140515
  Serious: Yes (Other)
  Sender: FDA-Public Use
  Company Number: PHEH2013US014069

PATIENT
  Age: 57 Year
  Sex: Male
  Weight: 61.22 kg

DRUGS (1)
  1. FEMARA [Suspect]
     Dosage: UNK UKN, UNK

REACTIONS (16)
  - Neuropathy peripheral [Unknown]
  - Anaemia [Unknown]
  - Palmar-plantar erythrodysaesthesia syndrome [Unknown]
  - Blood glucose increased [Unknown]
  - Lung disorder [Unknown]
  - Insomnia [Unknown]
  - Dizziness [Unknown]
  - Alopecia [Unknown]
  - Blood pressure increased [Unknown]
  - Arthralgia [Unknown]
  - Nausea [Unknown]
  - Fatigue [Unknown]
  - Vomiting [Unknown]
  - Anxiety [Unknown]
  - Diarrhoea [Unknown]
  - Constipation [Unknown]
